FAERS Safety Report 6750460-6 (Version None)
Quarter: 2010Q2

REPORT INFORMATION
  Report Type: 
  Country: None (occurrence: None)
  Receive Date: 20100527
  Receipt Date: 20100511
  Transmission Date: 20101027
  Serious: Yes (Other)
  Sender: FDA-Public Use
  Company Number: PHHY2010GB31873

PATIENT
  Age: 16 Year
  Sex: Male

DRUGS (1)
  1. VISUDYNE [Suspect]
     Indication: HAEMANGIOMA OF RETINA

REACTIONS (4)
  - MACULAR OEDEMA [None]
  - RETINAL EXUDATES [None]
  - RETINAL HAEMORRHAGE [None]
  - RETINAL OEDEMA [None]
